FAERS Safety Report 5579080-6 (Version None)
Quarter: 2008Q1

REPORT INFORMATION
  Report Type: 
  Country: None (occurrence: None)
  Receive Date: 20080102
  Receipt Date: 20071227
  Transmission Date: 20080703
  Serious: Yes (Death, Life-Threatening)
  Sender: FDA-Public Use
  Company Number: JP-ASTRAZENECA-2007AP06582

PATIENT
  Age: 79 Year
  Sex: Male
  Weight: 40 kg

DRUGS (11)
  1. IRESSA [Suspect]
     Indication: NON-SMALL CELL LUNG CANCER
     Route: 048
     Dates: start: 20070510, end: 20070611
  2. MUCOSTA [Concomitant]
     Indication: GASTRITIS
     Route: 048
     Dates: end: 20071002
  3. HALCION [Concomitant]
     Indication: INSOMNIA
     Route: 048
     Dates: end: 20071002
  4. BIOFERMIN R [Concomitant]
     Indication: DIARRHOEA
     Route: 048
     Dates: start: 20070614, end: 20071002
  5. LOXONIN [Concomitant]
     Indication: BACK PAIN
     Route: 048
     Dates: start: 20070830, end: 20071022
  6. LOXONIN [Concomitant]
     Indication: ABDOMINAL PAIN UPPER
     Route: 048
     Dates: start: 20070830, end: 20071022
  7. NOVAMIN [Concomitant]
     Indication: NAUSEA
     Route: 048
     Dates: start: 20070919, end: 20071002
  8. MAGLAX [Concomitant]
     Indication: CONSTIPATION
     Route: 048
     Dates: start: 20070919, end: 20071010
  9. KADIAN [Concomitant]
     Indication: BACK PAIN
     Route: 048
     Dates: start: 20070919, end: 20071010
  10. KADIAN [Concomitant]
     Indication: ABDOMINAL PAIN UPPER
     Route: 048
     Dates: start: 20070919, end: 20071010
  11. RADIOTHERAPY [Concomitant]
     Dosage: 9 GRAY
     Dates: start: 20070827, end: 20070830

REACTIONS (1)
  - PNEUMONIA [None]
